FAERS Safety Report 5490226-0 (Version None)
Quarter: 2007Q4

REPORT INFORMATION
  Report Type: 
  Country: None (occurrence: None)
  Receive Date: 20071017
  Receipt Date: 20071001
  Transmission Date: 20080405
  Serious: Yes (Life-Threatening, Hospitalization)
  Sender: FDA-Public Use
  Company Number: DSA_30694_2007

PATIENT
  Sex: Male

DRUGS (18)
  1. ATIVAN [Suspect]
     Indication: ANXIETY
     Dosage: (2 MG BID ORAL)
     Route: 048
     Dates: start: 20060101, end: 20070601
  2. XANAX [Suspect]
     Indication: ANXIETY
     Dosage: (DF AS NEEDED ORAL)
     Route: 048
     Dates: start: 20060101, end: 20070601
  3. BENZODIAZEPINE (UNSPECIFIED) [Suspect]
     Indication: ANXIETY
     Dosage: (DF ORAL)
     Route: 048
     Dates: start: 20060101, end: 20070601
  4. REBIF [Suspect]
     Indication: MULTIPLE SCLEROSIS
     Dosage: (44 UG 3X/WEEK SUBCUTANEOUS)
     Route: 058
     Dates: start: 20060701
  5. COPAXONE [Concomitant]
  6. SYNTHROID [Concomitant]
  7. CHOLESTEROL [Concomitant]
  8. OMACOR [Concomitant]
  9. CELEBREX [Concomitant]
  10. TRAMADOL HCL [Concomitant]
  11. LYRICA [Concomitant]
  12. TOPROL-XL [Concomitant]
  13. CYTOMEL [Concomitant]
  14. BACLOFEN [Concomitant]
  15. DETROL [Concomitant]
  16. AMBIEN [Concomitant]
  17. RESTORIL [Concomitant]
  18. NEXIUM [Concomitant]

REACTIONS (8)
  - AGGRESSION [None]
  - DEPRESSION [None]
  - HYPOTHYROIDISM [None]
  - MULTIPLE SCLEROSIS [None]
  - PARANOIA [None]
  - PERSONALITY CHANGE [None]
  - PSYCHOTIC DISORDER [None]
  - SUICIDAL IDEATION [None]
